FAERS Safety Report 24746678 (Version 1)
Quarter: 2024Q4

REPORT INFORMATION
  Report Type: Spontaneous
  Country: CO (occurrence: CO)
  Receive Date: 20241218
  Receipt Date: 20241218
  Transmission Date: 20250115
  Serious: Yes (Death, Other)
  Sender: AMGEN
  Company Number: CO-AMGEN-COLSP2024245123

PATIENT

DRUGS (1)
  1. FILGRASTIM [Suspect]
     Active Substance: FILGRASTIM
     Indication: Haematopoietic stem cell mobilisation
     Dosage: 15 MILLIGRAM/KILOGRAM, BID FOR THREE TO SIX DAYS
     Route: 065

REACTIONS (1)
  - Death [Fatal]
